FAERS Safety Report 9367376 (Version 2)
Quarter: 2013Q4

REPORT INFORMATION
  Report Type: Spontaneous
  Country: GB (occurrence: GB)
  Receive Date: 20130625
  Receipt Date: 20131111
  Transmission Date: 20140711
  Serious: Yes (Hospitalization)
  Sender: FDA-Public Use
  Company Number: GB-TEVA-413547ISR

PATIENT
  Age: 83 Year
  Sex: Female

DRUGS (1)
  1. RISEDRONIC ACID [Suspect]
     Indication: OSTEOPETROSIS
     Route: 048

REACTIONS (2)
  - Atypical femur fracture [Recovered/Resolved]
  - Vitamin D deficiency [Recovered/Resolved]
